FAERS Safety Report 23001951 (Version 3)
Quarter: 2024Q1

REPORT INFORMATION
  Report Type: Spontaneous
  Country: US (occurrence: US)
  Receive Date: 20230928
  Receipt Date: 20240229
  Transmission Date: 20240409
  Serious: No
  Sender: FDA-Public Use
  Company Number: US-BRISTOL-MYERS SQUIBB COMPANY-2023-137724

PATIENT
  Age: 70 Year
  Sex: Female
  Weight: 58.97 kg

DRUGS (2)
  1. POMALYST [Suspect]
     Active Substance: POMALIDOMIDE
     Indication: Plasma cell myeloma
     Route: 048
  2. POMALYST [Suspect]
     Active Substance: POMALIDOMIDE
     Dosage: FREQUENCY: 3WKSON,1WKOFF
     Route: 048

REACTIONS (4)
  - Fatigue [Unknown]
  - Full blood count decreased [Unknown]
  - Diarrhoea [Recovering/Resolving]
  - Intentional dose omission [Unknown]
